FAERS Safety Report 5071524-1 (Version None)
Quarter: 2006Q3

REPORT INFORMATION
  Report Type: 
  Country: None (occurrence: None)
  Receive Date: 20060714
  Receipt Date: 20060605
  Transmission Date: 20061208
  Serious: No
  Sender: FDA-Public Use
  Company Number: 2006SP002306

PATIENT
  Age: 58 Year
  Sex: Female
  Weight: 86.1834 kg

DRUGS (22)
  1. LUNESTA [Suspect]
     Indication: INSOMNIA
     Dosage: SEE IMAGE
     Route: 048
     Dates: start: 20050401, end: 20050601
  2. LUNESTA [Suspect]
     Indication: INSOMNIA
     Dosage: SEE IMAGE
     Route: 048
     Dates: start: 20050601, end: 20050601
  3. LUNESTA [Suspect]
     Indication: INSOMNIA
     Dosage: SEE IMAGE
     Route: 048
     Dates: start: 20050601
  4. CYMBALTA [Concomitant]
  5. ZOLOFT [Concomitant]
  6. LUMIGAN [Concomitant]
  7. TRUSOPT [Concomitant]
  8. INSULIN [Concomitant]
  9. ASPIRIN [Concomitant]
  10. NEXIUM [Concomitant]
  11. LEVOXYL [Concomitant]
  12. TIAZAC [Concomitant]
  13. ULTRAM [Concomitant]
  14. FUROSEMIDE [Concomitant]
  15. METOPROLOL TARTRATE [Concomitant]
  16. LISINOPRIL [Concomitant]
  17. CLONIDINE [Concomitant]
  18. CLONAZEPAM [Concomitant]
  19. ALBUTEROL [Concomitant]
  20. ADVAIR DISKUS 100/50 [Concomitant]
  21. FLONASE [Concomitant]
  22. ASTELIN [Concomitant]

REACTIONS (1)
  - INSOMNIA [None]
